FAERS Safety Report 4485075-6 (Version None)
Quarter: 2004Q4

REPORT INFORMATION
  Report Type: 
  Country: None (occurrence: None)
  Receive Date: 20041022
  Receipt Date: 20041022
  Transmission Date: 20050328
  Serious: Yes (Death)
  Sender: FDA-Public Use
  Company Number: None

PATIENT
  Age: 3 Year
  Sex: Female
  Weight: 16 kg

DRUGS (1)
  1. ACETYLCYSTEINE [Suspect]
     Indication: DRUG TOXICITY
     Dosage: 39G IV
     Route: 042
     Dates: start: 20040101

REACTIONS (4)
  - INTRACRANIAL PRESSURE INCREASED [None]
  - MEDICATION ERROR [None]
  - OVERDOSE [None]
  - STATUS EPILEPTICUS [None]
